FAERS Safety Report 9718794 (Version 3)
Quarter: 2015Q1

REPORT INFORMATION
  Report Type: Spontaneous
  Country: US (occurrence: US)
  Receive Date: 20131127
  Receipt Date: 20150323
  Transmission Date: 20150721
  Serious: No
  Sender: FDA-Public Use
  Company Number: US-PFIZER INC-2013339057

PATIENT
  Age: 48 Year
  Sex: Female
  Weight: 104 kg

DRUGS (7)
  1. CYMBALTA [Concomitant]
     Active Substance: DULOXETINE HYDROCHLORIDE
     Dosage: 120 MG, DAILY
  2. LEVOTHYROXINE [Concomitant]
     Active Substance: LEVOTHYROXINE
     Dosage: 150 MG, UNK
  3. CYMBALTA [Concomitant]
     Active Substance: DULOXETINE HYDROCHLORIDE
     Indication: DEPRESSION
     Dosage: 90MG TWO TABLETS IN DAY AND ONE TABLET IN NIGHT
  4. LYRICA [Suspect]
     Active Substance: PREGABALIN
     Indication: FIBROMYALGIA
     Dosage: 200 MG, 3X/DAY
  5. LYRICA [Suspect]
     Active Substance: PREGABALIN
     Indication: PAIN
  6. MYRBETRIQ [Concomitant]
     Active Substance: MIRABEGRON
     Dosage: 50 MG, UNK
  7. LYRICA [Suspect]
     Active Substance: PREGABALIN
     Indication: MYALGIA

REACTIONS (7)
  - Temporomandibular joint syndrome [Unknown]
  - Therapeutic response unexpected [Unknown]
  - Weight increased [Unknown]
  - Pain [Unknown]
  - Pre-existing condition improved [Unknown]
  - Hunger [Unknown]
  - Condition aggravated [Unknown]
